FAERS Safety Report 19868604 (Version 1)
Quarter: 2021Q3

REPORT INFORMATION
  Report Type: Spontaneous
  Country: IE (occurrence: IE)
  Receive Date: 20210922
  Receipt Date: 20210922
  Transmission Date: 20211014
  Serious: Yes (Hospitalization, Other)
  Sender: FDA-Public Use
  Company Number: IE-LUPIN PHARMACEUTICALS INC.-2021-17924

PATIENT
  Age: 34 Year
  Sex: Female

DRUGS (8)
  1. MAGNESIUM [Suspect]
     Active Substance: MAGNESIUM
     Indication: SUPPLEMENTATION THERAPY
     Dosage: UNK
     Route: 065
  2. CALCIUM [Suspect]
     Active Substance: CALCIUM
     Indication: MINERAL SUPPLEMENTATION
     Dosage: UNK
     Route: 042
  3. CALCIUM [Suspect]
     Active Substance: CALCIUM
     Dosage: UNK?CALCIUM CARBONATE
     Route: 048
  4. ALFACALCIDOL [Suspect]
     Active Substance: ALFACALCIDOL
     Indication: MINERAL SUPPLEMENTATION
     Dosage: UNK
     Route: 048
  5. OMEPRAZOLE. [Interacting]
     Active Substance: OMEPRAZOLE
     Indication: GASTRINOMA
     Dosage: 40 MILLIGRAM, BID
     Route: 065
  6. CALCIUM [Suspect]
     Active Substance: CALCIUM
     Dosage: UNK
     Route: 042
  7. CALCIUM [Suspect]
     Active Substance: CALCIUM
     Dosage: UNK?CALCIUM CITRATE
     Route: 048
  8. VITAMIN D [Suspect]
     Active Substance: VITAMIN D NOS
     Indication: SUPPLEMENTATION THERAPY
     Dosage: UNK
     Route: 065

REACTIONS (4)
  - Calcium metabolism disorder [Recovered/Resolved]
  - Drug interaction [Unknown]
  - Exposure during pregnancy [Unknown]
  - Normal newborn [Unknown]
